FAERS Safety Report 5859457-1 (Version None)
Quarter: 2008Q3

REPORT INFORMATION
  Report Type: 
  Country: None (occurrence: None)
  Receive Date: 20080826
  Receipt Date: 20080826
  Transmission Date: 20090109
  Serious: Yes (Other)
  Sender: FDA-Public Use
  Company Number: None

PATIENT
  Sex: Female
  Weight: 57.1532 kg

DRUGS (1)
  1. CEFEPIME [Suspect]
     Indication: ACUTE MYELOID LEUKAEMIA
     Dosage: 1000MG Q12H IV
     Route: 042

REACTIONS (1)
  - RASH [None]
